FAERS Safety Report 11419068 (Version 3)
Quarter: 2017Q3

REPORT INFORMATION
  Report Type: Spontaneous
  Country: US (occurrence: US)
  Receive Date: 20150826
  Receipt Date: 20170703
  Transmission Date: 20171127
  Serious: Yes (Other)
  Sender: FDA-Public Use
  Company Number: US-JNJCP-30000300681

PATIENT
  Sex: Female

DRUGS (6)
  1. ROC MULTI CORREXION 5 IN 1 MOISTURIZER SUNSCREEN BROAD SPECTRUM SPF30 [Suspect]
     Active Substance: AVOBENZONE\HOMOSALATE\OCTISALATE\OCTOCRYLENE
     Indication: SKIN WRINKLING
     Route: 061
  2. ROC RETINOL CORREXION DEEP WRINKLE NIGHT CREAM [Suspect]
     Active Substance: COSMETICS
     Indication: SKIN WRINKLING
     Route: 061
  3. ROC MULTI CORREXION LIFT ANTI-GRAVITY NIGHT CREAM [Suspect]
     Active Substance: COSMETICS
     Indication: SKIN WRINKLING
     Route: 061
  4. ROC RETINOL CORREXION DEEP WRINKLE FILLER [Suspect]
     Active Substance: COSMETICS
     Indication: SKIN WRINKLING
     Route: 061
  5. ROC MULTI CORREXION 5 IN 1 EYE CREAM [Suspect]
     Active Substance: COSMETICS
     Indication: SKIN WRINKLING
     Route: 061
  6. ROC RETINOL CORREXION DEEP WRINKLE DAILY MOISTURIZER SPF30 [Suspect]
     Active Substance: AVOBENZONE\HOMOSALATE\OCTOCRYLENE\OXYBENZONE
     Indication: SKIN WRINKLING
     Route: 061

REACTIONS (4)
  - Application site acne [Unknown]
  - Product expiration date issue [Unknown]
  - Ovarian cancer [Unknown]
  - Product lot number issue [Unknown]
